FAERS Safety Report 24039004 (Version 2)
Quarter: 2024Q3

REPORT INFORMATION
  Report Type: Other
  Country: AU (occurrence: AU)
  Receive Date: 20240702
  Receipt Date: 20240827
  Transmission Date: 20241017
  Serious: Yes (Death)
  Sender: TOLMAR
  Company Number: AU-TOLMAR, INC.-24AU050014

PATIENT
  Sex: Male

DRUGS (2)
  1. ELIGARD [Suspect]
     Active Substance: LEUPROLIDE ACETATE
     Indication: Prostate cancer
     Dosage: 22.5 MILLIGRAM, Q 3 MONTH
     Dates: start: 20220617
  2. ELIGARD [Suspect]
     Active Substance: LEUPROLIDE ACETATE
     Indication: Prostate cancer
     Dosage: UNK

REACTIONS (6)
  - Death [Fatal]
  - Dysphagia [Not Recovered/Not Resolved]
  - Mobility decreased [Not Recovered/Not Resolved]
  - Dizziness postural [Not Recovered/Not Resolved]
  - Condition aggravated [Not Recovered/Not Resolved]
  - Quality of life decreased [Unknown]
